FAERS Safety Report 18688258 (Version 1)
Quarter: 2020Q4

REPORT INFORMATION
  Report Type: Spontaneous
  Country: IT (occurrence: IT)
  Receive Date: 20201231
  Receipt Date: 20201231
  Transmission Date: 20210114
  Serious: Yes (Life-Threatening, Other)
  Sender: FDA-Public Use
  Company Number: IT-AUROBINDO-AUR-APL-2020-063363

PATIENT
  Age: 66 Year
  Sex: Female

DRUGS (6)
  1. MIRTAZAPINE. [Suspect]
     Active Substance: MIRTAZAPINE
     Indication: PRODUCT USED FOR UNKNOWN INDICATION
     Dosage: 90 DOSAGE FORM, TOTAL
     Route: 048
     Dates: start: 20200923, end: 20200923
  2. TALOFEN [Suspect]
     Active Substance: PROMAZINE HYDROCHLORIDE
     Indication: PRODUCT USED FOR UNKNOWN INDICATION
     Dosage: 13.3 GRAM, TOTAL
     Route: 048
     Dates: start: 20200923, end: 20200923
  3. SERTRALINE [Suspect]
     Active Substance: SERTRALINE HYDROCHLORIDE
     Indication: PRODUCT USED FOR UNKNOWN INDICATION
     Dosage: 30 DOSAGE FORM, TOTAL
     Route: 048
     Dates: start: 20200923, end: 20200923
  4. LITIO CARBONATO [Suspect]
     Active Substance: LITHIUM CARBONATE
     Indication: PRODUCT USED FOR UNKNOWN INDICATION
     Dosage: 10 DOSAGE FORM, TOTAL
     Route: 048
     Dates: start: 20200923, end: 20200923
  5. PROMAZINE [Suspect]
     Active Substance: PROMAZINE
     Indication: PRODUCT USED FOR UNKNOWN INDICATION
     Dosage: 13.3 GRAM, TOTAL
     Route: 048
     Dates: start: 20200923, end: 20200923
  6. TRITTICO [Suspect]
     Active Substance: TRAZODONE HYDROCHLORIDE
     Indication: PRODUCT USED FOR UNKNOWN INDICATION
     Dosage: 60 DOSAGE FORM, TOTAL
     Route: 048
     Dates: start: 20200923, end: 20200923

REACTIONS (2)
  - Drug abuse [Unknown]
  - Coma [Unknown]

NARRATIVE: CASE EVENT DATE: 20200923
